FAERS Safety Report 9034399 (Version 1)
Quarter: 2013Q1

REPORT INFORMATION
  Report Type: Spontaneous
  Country: IN (occurrence: None)
  Receive Date: 20130111
  Receipt Date: 20130111
  Transmission Date: 20140127
  Serious: Yes (Other)
  Sender: FDA-Public Use
  Company Number: 2013P1000136

PATIENT
  Age: 60 Year
  Sex: Female

DRUGS (2)
  1. PHENOBARBITAL [Suspect]
     Indication: GRAND MAL CONVULSION
  2. PHENYTOIN [Suspect]
     Indication: GRAND MAL CONVULSION

REACTIONS (2)
  - Gingival hypertrophy [None]
  - Tooth loss [None]
